FAERS Safety Report 14198698 (Version 1)
Quarter: 2017Q4

REPORT INFORMATION
  Report Type: Spontaneous
  Country: FR (occurrence: FR)
  Receive Date: 20171117
  Receipt Date: 20171117
  Transmission Date: 20180321
  Serious: Yes (Other)
  Sender: FDA-Public Use
  Company Number: FR-MERCK KGAA-2034494

PATIENT
  Age: 85 Year
  Sex: Female

DRUGS (1)
  1. NOVOTHYROX [Suspect]
     Active Substance: LEVOTHYROXINE SODIUM
     Indication: PRODUCT USED FOR UNKNOWN INDICATION
     Dates: start: 201703

REACTIONS (6)
  - Hot flush [Recovered/Resolved]
  - Vertigo [Not Recovered/Not Resolved]
  - Blood thyroid stimulating hormone increased [None]
  - Hypertensive crisis [Recovered/Resolved]
  - Depressed mood [Recovered/Resolved]
  - Syncope [Recovered/Resolved]

NARRATIVE: CASE EVENT DATE: 201704
